FAERS Safety Report 21613149 (Version 1)
Quarter: 2022Q4

REPORT INFORMATION
  Report Type: Report from Study
  Country: US (occurrence: US)
  Receive Date: 20221118
  Receipt Date: 20221118
  Transmission Date: 20230113
  Serious: No
  Sender: FDA-Public Use
  Company Number: US-ABBVIE-22K-163-4533163-00

PATIENT
  Sex: Male

DRUGS (1)
  1. HUMIRA [Suspect]
     Active Substance: ADALIMUMAB
     Indication: Product used for unknown indication
     Dosage: CITRATE FREE
     Route: 058

REACTIONS (6)
  - Crohn^s disease [Unknown]
  - Genital pain [Unknown]
  - Stomatitis [Unknown]
  - Gingival discomfort [Unknown]
  - Skin irritation [Unknown]
  - Pain [Unknown]
